FAERS Safety Report 9146441 (Version 2)
Quarter: 2013Q2

REPORT INFORMATION
  Report Type: Report from Study
  Country: IN (occurrence: IN)
  Receive Date: 20130307
  Receipt Date: 20130418
  Transmission Date: 20140414
  Serious: Yes (Death)
  Sender: FDA-Public Use
  Company Number: IN-SANOFI-AVENTIS-2013SA021897

PATIENT
  Age: 49 Year
  Sex: Female
  Weight: 39 kg

DRUGS (11)
  1. DOCETAXEL [Suspect]
     Indication: NON-SMALL CELL LUNG CANCER
     Dosage: FREQUENCY- EVERY THREE WEEKS
     Route: 051
     Dates: start: 20120824, end: 20120824
  2. DOCETAXEL [Suspect]
     Indication: NON-SMALL CELL LUNG CANCER
     Route: 051
     Dates: start: 20120915, end: 20120915
  3. BLINDED THERAPY [Suspect]
     Indication: NON-SMALL CELL LUNG CANCER
     Route: 042
     Dates: start: 20120824, end: 20120824
  4. BLINDED THERAPY [Suspect]
     Indication: NON-SMALL CELL LUNG CANCER
     Route: 042
     Dates: start: 20120915, end: 20120915
  5. FILGRASTIM [Concomitant]
     Dates: start: 20120921, end: 20120926
  6. RANITIDINE [Concomitant]
     Dates: start: 20120831, end: 20120926
  7. PARACETAMOL [Concomitant]
     Dates: start: 20120921, end: 20120926
  8. CIPROFLOXACIN [Concomitant]
     Dates: start: 20120921, end: 20120926
  9. DEXAMETHASONE [Concomitant]
     Dates: start: 20120904, end: 20120917
  10. AVIL [Concomitant]
     Dates: start: 20120915, end: 20120915
  11. ONDANSETRON [Concomitant]
     Dates: start: 20120915, end: 20120915

REACTIONS (1)
  - Haemoptysis [Fatal]
